FAERS Safety Report 5288829-1 (Version None)
Quarter: 2007Q2

REPORT INFORMATION
  Report Type: 
  Country: None (occurrence: None)
  Receive Date: 20070405
  Receipt Date: 20070329
  Transmission Date: 20071010
  Serious: Yes (Hospitalization)
  Sender: FDA-Public Use
  Company Number: CA-MERCK-0612CAN00052

PATIENT
  Age: 73 Year
  Sex: Female

DRUGS (4)
  1. EZETIMIBE [Suspect]
     Indication: HYPERLIPIDAEMIA
     Route: 048
     Dates: end: 20061204
  2. WARFARIN SODIUM [Concomitant]
     Indication: ATRIAL FIBRILLATION
     Route: 065
     Dates: start: 20050101
  3. METOPROLOL [Concomitant]
     Route: 065
     Dates: start: 20050101
  4. RAMIPRIL [Concomitant]
     Indication: ARTERIOSCLEROSIS CORONARY ARTERY
     Route: 065
     Dates: start: 20060101

REACTIONS (3)
  - BLOOD CREATINE PHOSPHOKINASE INCREASED [None]
  - FALL [None]
  - MUSCULAR WEAKNESS [None]
